APPROVED DRUG PRODUCT: TAPENTADOL HYDROCHLORIDE
Active Ingredient: TAPENTADOL HYDROCHLORIDE
Strength: EQ 100MG BASE
Dosage Form/Route: TABLET;ORAL
Application: A205057 | Product #003 | TE Code: AB
Applicant: HIKMA PHARMACEUTICALS USA INC
Approved: Feb 10, 2026 | RLD: No | RS: No | Type: RX